FAERS Safety Report 10346340 (Version 1)
Quarter: 2014Q3

REPORT INFORMATION
  Report Type: Spontaneous
  Country: JP (occurrence: JP)
  Receive Date: 20140728
  Receipt Date: 20140728
  Transmission Date: 20150326
  Serious: Yes (Other)
  Sender: FDA-Public Use
  Company Number: PHHY2011JP121261

PATIENT
  Age: 93 Year
  Sex: Male

DRUGS (1)
  1. GLIVEC [Suspect]
     Active Substance: IMATINIB MESYLATE
     Indication: CHRONIC MYELOID LEUKAEMIA
     Dosage: UNK
     Dates: start: 201104

REACTIONS (5)
  - White blood cell count increased [Unknown]
  - Pleural effusion [Unknown]
  - Oedema peripheral [Unknown]
  - Tuberculous pleurisy [Unknown]
  - Decreased appetite [Unknown]
